FAERS Safety Report 7388803-5 (Version None)
Quarter: 2011Q2

REPORT INFORMATION
  Report Type: 
  Country: None (occurrence: None)
  Receive Date: 20110401
  Receipt Date: 20110324
  Transmission Date: 20111010
  Serious: Yes (Hospitalization)
  Sender: FDA-Public Use
  Company Number: FR-B.I. PHARMACEUTICALS,INC./RIDGEFIELD-2010-FF-00323FF

PATIENT
  Sex: Male
  Weight: 65 kg

DRUGS (7)
  1. ARIXTRA [Concomitant]
     Dosage: 7.5 MG
     Route: 048
  2. VIDEX [Suspect]
     Indication: HIV INFECTION
     Dosage: 300 MG
     Route: 048
     Dates: start: 19970101, end: 19970801
  3. VIDEX [Suspect]
     Dosage: 300 MG
     Route: 048
     Dates: start: 19990701, end: 20080201
  4. PRAVASTATIN SODIUM [Suspect]
     Indication: HYPERCHOLESTEROLAEMIA
     Route: 048
     Dates: start: 19990701
  5. VIRAMUNE [Suspect]
     Indication: HIV INFECTION
     Dosage: 400 MG
     Route: 048
     Dates: start: 19990701
  6. ZIAGEN [Suspect]
     Indication: HIV INFECTION
     Dosage: 600 MG
     Route: 048
     Dates: start: 20000807
  7. PERINDOPRIL [Concomitant]
     Dosage: 2 MG
     Route: 048

REACTIONS (6)
  - CHOLESTASIS [None]
  - VARICES OESOPHAGEAL [None]
  - PORTAL VEIN THROMBOSIS [None]
  - VENOOCCLUSIVE LIVER DISEASE [None]
  - FACTOR V LEIDEN MUTATION [None]
  - THYROID NEOPLASM [None]
